FAERS Safety Report 9919491 (Version 2)
Quarter: 2014Q1

REPORT INFORMATION
  Report Type: Spontaneous
  Country: US (occurrence: US)
  Receive Date: 20140224
  Receipt Date: 20140305
  Transmission Date: 20141002
  Serious: Yes (Hospitalization)
  Sender: FDA-Public Use
  Company Number: US-ACTELION-A-US2014-94979

PATIENT
  Age: 65 Year
  Sex: Male

DRUGS (3)
  1. OPSUMIT [Suspect]
     Indication: PRODUCT USED FOR UNKNOWN INDICATION
     Dosage: 10 MG, QD
     Route: 048
     Dates: start: 20140121
  2. REMODULIN [Concomitant]
     Route: 058
  3. REVATIO [Concomitant]

REACTIONS (3)
  - Drug therapy [Unknown]
  - Dyspnoea [Unknown]
  - Headache [Unknown]
